FAERS Safety Report 8804292 (Version 1)
Quarter: 2012Q4

REPORT INFORMATION
  Report Type: 
  Country: BR (occurrence: BR)
  Receive Date: 20120924
  Receipt Date: 20120924
  Transmission Date: 20130627
  Serious: Yes (Hospitalization)
  Sender: FDA-Public Use
  Company Number: BR-ABBOTT-12P-020-0973065-00

PATIENT
  Age: 81 Year
  Sex: Female

DRUGS (1)
  1. ATACAND HCT [Suspect]
     Dosage: 16/12.5mg
     Route: 048
     Dates: end: 201207

REACTIONS (2)
  - Aortic valve replacement [Recovered/Resolved]
  - Vascular graft [Recovered/Resolved]
